FAERS Safety Report 5536760-6 (Version None)
Quarter: 2007Q4

REPORT INFORMATION
  Report Type: 
  Country: None (occurrence: None)
  Receive Date: 20071206
  Receipt Date: 20070516
  Transmission Date: 20080405
  Serious: Yes (Hospitalization)
  Sender: FDA-Public Use
  Company Number: US-AMGEN-STX225033

PATIENT
  Sex: Female

DRUGS (2)
  1. ENBREL [Suspect]
     Indication: RHEUMATOID ARTHRITIS
     Route: 058
     Dates: start: 20040202
  2. METHOTREXATE [Concomitant]
     Dates: start: 19910101

REACTIONS (3)
  - CLOSTRIDIUM DIFFICILE COLITIS [None]
  - EAR INFECTION [None]
  - PHARYNGITIS [None]
